FAERS Safety Report 23948139 (Version 2)
Quarter: 2024Q2

REPORT INFORMATION
  Report Type: Spontaneous
  Country: US (occurrence: US)
  Receive Date: 20240607
  Receipt Date: 20240618
  Transmission Date: 20240715
  Serious: No
  Sender: FDA-Public Use
  Company Number: US-IMP-2024000318

PATIENT
  Age: 78 Year
  Sex: Male

DRUGS (3)
  1. VEVYE [Suspect]
     Active Substance: CYCLOSPORINE
     Indication: Cataract
     Dosage: 1 DROP TWICE A DAY
     Route: 065
     Dates: start: 20240513
  2. Pataday drops [Concomitant]
     Indication: Product used for unknown indication
     Route: 065
  3. Refresh relieve [Concomitant]
     Indication: Product used for unknown indication
     Route: 065

REACTIONS (2)
  - Product use issue [Unknown]
  - Product dose omission issue [Unknown]

NARRATIVE: CASE EVENT DATE: 20240526
